FAERS Safety Report 10665572 (Version 2)
Quarter: 2014Q4

REPORT INFORMATION
  Report Type: Spontaneous
  Country: JP (occurrence: JP)
  Receive Date: 20141219
  Receipt Date: 20141224
  Transmission Date: 20150529
  Serious: Yes (Hospitalization, Other)
  Sender: FDA-Public Use
  Company Number: PHHY2014JP165534

PATIENT
  Age: 77 Year
  Sex: Male

DRUGS (2)
  1. NEORAL [Suspect]
     Active Substance: CYCLOSPORINE
     Indication: PRURIGO
     Dosage: 225 MG, DAILY
     Route: 048
     Dates: start: 20100614
  2. NEORAL [Suspect]
     Active Substance: CYCLOSPORINE
     Dosage: 125 MG, DAILY
     Route: 048
     Dates: end: 201207

REACTIONS (8)
  - Nervous system disorder [Unknown]
  - Blood triglycerides increased [Unknown]
  - Cerebrovascular accident [Not Recovered/Not Resolved]
  - Cerebral haemorrhage [Recovering/Resolving]
  - Apparent death [Recovering/Resolving]
  - Hypertension [Unknown]
  - Pruritus generalised [Unknown]
  - Dysarthria [Unknown]

NARRATIVE: CASE EVENT DATE: 20130328
